FAERS Safety Report 22281151 (Version 1)
Quarter: 2023Q2

REPORT INFORMATION
  Report Type: Spontaneous
  Country: US (occurrence: US)
  Receive Date: 20230504
  Receipt Date: 20230504
  Transmission Date: 20230722
  Serious: No
  Sender: FDA-Public Use
  Company Number: US-CIPLA LTD.-2023US01673

PATIENT

DRUGS (1)
  1. ALBUTEROL [Suspect]
     Active Substance: ALBUTEROL
     Indication: Dyspnoea
     Dosage: 0.09 MILLIGRAM, PRN (1 PUFF EVERY 4 HOURS AS NEEDED/OCCASIONALLY)
     Dates: start: 202212

REACTIONS (7)
  - Dyspnoea [Unknown]
  - Oropharyngeal discomfort [Not Recovered/Not Resolved]
  - Device delivery system issue [Unknown]
  - Device ineffective [Unknown]
  - Device maintenance issue [Unknown]
  - Device issue [Unknown]
  - Product substitution issue [Unknown]

NARRATIVE: CASE EVENT DATE: 20221201
